FAERS Safety Report 5391155-3 (Version None)
Quarter: 2007Q3

REPORT INFORMATION
  Report Type: 
  Country: None (occurrence: None)
  Receive Date: 20070719
  Receipt Date: 20070710
  Transmission Date: 20080115
  Serious: Yes (Other)
  Sender: FDA-Public Use
  Company Number: PHBS2007BR11703

PATIENT
  Age: 84 Year
  Sex: Female
  Weight: 49 kg

DRUGS (1)
  1. MIACALCIN [Suspect]
     Indication: SPINAL FRACTURE
     Dosage: 200 IU, QD
     Route: 045
     Dates: start: 20060101

REACTIONS (2)
  - ANGIOPLASTY [None]
  - VASCULAR CALCIFICATION [None]
